FAERS Safety Report 5956760-1 (Version None)
Quarter: 2008Q4

REPORT INFORMATION
  Report Type: 
  Country: None (occurrence: None)
  Receive Date: 20081031
  Receipt Date: 20080812
  Transmission Date: 20090506
  Serious: No
  Sender: FDA-Public Use
  Company Number: 2008PV036437

PATIENT
  Age: 70 Year
  Sex: Female

DRUGS (2)
  1. SYMLIN [Suspect]
     Indication: DIABETES MELLITUS
     Dosage: 12 MCG;BID;SC
     Route: 058
  2. LANTUS [Concomitant]

REACTIONS (2)
  - DIZZINESS [None]
  - WRONG DRUG ADMINISTERED [None]
